FAERS Safety Report 18633860 (Version 3)
Quarter: 2021Q2

REPORT INFORMATION
  Report Type: Spontaneous
  Country: US (occurrence: US)
  Receive Date: 20201218
  Receipt Date: 20210429
  Transmission Date: 20210717
  Serious: Yes (Other)
  Sender: FDA-Public Use
  Company Number: US-VERTEX PHARMACEUTICALS-2020-024760

PATIENT
  Age: 20 Year
  Sex: Female
  Weight: 47 kg

DRUGS (7)
  1. PROGRAF [Concomitant]
     Active Substance: TACROLIMUS
     Dosage: 1 MG
  2. IMURAN [Concomitant]
     Active Substance: AZATHIOPRINE
     Dosage: 50 MG
  3. SODIUM BICARBONATE. [Concomitant]
     Active Substance: SODIUM BICARBONATE
     Dosage: 325 MG
  4. TRIKAFTA [Suspect]
     Active Substance: ELEXACAFTOR\IVACAFTOR\TEZACAFTOR
     Indication: CYSTIC FIBROSIS
     Dosage: 2 TABS (100 MG ELEXACAFTOR/50 MG IVACAFTOR/75 MG IVACAFTOR) AM; 1 TAB (150 MG IVACAFTOR) PM
     Route: 048
     Dates: start: 201911, end: 202001
  5. MAGNESIUM [Concomitant]
     Active Substance: MAGNESIUM
     Dosage: 10 MG
  6. VITAMIN D3 [Concomitant]
     Active Substance: CHOLECALCIFEROL
     Dosage: 50 MICROGRAM
  7. TRIKAFTA [Suspect]
     Active Substance: ELEXACAFTOR\IVACAFTOR\TEZACAFTOR
     Dosage: 100MG ELEXACAFTOR/ 50MG TEZACAFTOR/ 75MG IVACAFTOR; 150MG IVACAFTOR, REGULAR DOSE
     Route: 048
     Dates: start: 20200224

REACTIONS (7)
  - Fluid retention [Not Recovered/Not Resolved]
  - Hypopnoea [Not Recovered/Not Resolved]
  - Medical procedure [Unknown]
  - Mental disorder [Not Recovered/Not Resolved]
  - Hyperhidrosis [Unknown]
  - Rash papular [Recovering/Resolving]
  - Face oedema [Unknown]

NARRATIVE: CASE EVENT DATE: 202010
